FAERS Safety Report 15656775 (Version 1)
Quarter: 2018Q4

REPORT INFORMATION
  Report Type: Spontaneous
  Country: US (occurrence: US)
  Receive Date: 20181126
  Receipt Date: 20181126
  Transmission Date: 20190205
  Serious: Yes (Other)
  Sender: FDA-Public Use
  Company Number: None

PATIENT
  Sex: Female

DRUGS (6)
  1. REYATAZ [Suspect]
     Active Substance: ATAZANAVIR SULFATE
     Indication: HIV INFECTION
     Route: 048
     Dates: start: 20170715, end: 20181126
  2. NORVIR 100MG [Concomitant]
     Dates: start: 20140715, end: 20181126
  3. ATAZANAVIR SULFATE. [Suspect]
     Active Substance: ATAZANAVIR SULFATE
     Indication: HIV INFECTION
     Route: 048
     Dates: start: 20140715, end: 20181126
  4. DESCOVY 200-25MG [Concomitant]
     Dates: start: 20160815, end: 20181126
  5. PREZISTA 800MG [Concomitant]
     Dates: start: 20171013, end: 20171113
  6. ACYCLOVIR 400MG [Concomitant]
     Dates: start: 20170715, end: 20181126

REACTIONS (1)
  - Nephrolithiasis [None]
